FAERS Safety Report 9911932 (Version 2)
Quarter: 2014Q1

REPORT INFORMATION
  Report Type: Spontaneous
  Country: US (occurrence: US)
  Receive Date: 20140219
  Receipt Date: 20140219
  Transmission Date: 20141002
  Serious: No
  Sender: FDA-Public Use
  Company Number: US-MYLANLABS-2013S1020515

PATIENT
  Age: 42 Year
  Sex: Female
  Weight: 61.24 kg

DRUGS (1)
  1. EPIPEN [Suspect]
     Dates: start: 20130910, end: 20130910

REACTIONS (6)
  - Accidental exposure to product [Recovered/Resolved]
  - Hypoaesthesia [Recovered/Resolved]
  - Peripheral coldness [Recovered/Resolved]
  - Expired drug administered [Recovered/Resolved]
  - Injection site hypoaesthesia [None]
  - Injection site coldness [None]
